FAERS Safety Report 5492436-5 (Version None)
Quarter: 2007Q4

REPORT INFORMATION
  Report Type: 
  Country: None (occurrence: None)
  Receive Date: 20071022
  Receipt Date: 20071008
  Transmission Date: 20080405
  Serious: Yes (Hospitalization)
  Sender: FDA-Public Use
  Company Number: NL-RANBAXY-2007RR-10578

PATIENT

DRUGS (3)
  1. CIPROFLOXACIN 250 MG FILM-COATED TABLETS [Suspect]
     Indication: UROSEPSIS
     Dosage: UNK
  2. CLOZAPINE [Suspect]
     Indication: SCHIZOPHRENIA, PARANOID TYPE
     Dosage: 900 MG, UNK
  3. AMOXICILLIN [Concomitant]
     Indication: UROSEPSIS
     Dosage: UNK

REACTIONS (2)
  - DRUG INTERACTION [None]
  - RHABDOMYOLYSIS [None]
